FAERS Safety Report 10076431 (Version 1)
Quarter: 2014Q2

REPORT INFORMATION
  Report Type: Spontaneous
  Country: US (occurrence: None)
  Receive Date: 20140410
  Receipt Date: 20140410
  Transmission Date: 20141212
  Serious: Yes (Death)
  Sender: FDA-Public Use
  Company Number: UTC-046841

PATIENT
  Age: 72 Year
  Sex: Male
  Weight: 88.4 kg

DRUGS (2)
  1. REMODULIN (2.5 MILLIGRAM/MILLILITERS, INJECTION FOR INFUSION) (TREPROSTINIL SODIUM) [Suspect]
     Indication: PULMONARY ARTERIAL HYPERTENSION
     Dosage: 10.08 UG/KG (0.007 UG/KG, 1 IN MIN), INTRAVENOUS
     Route: 042
     Dates: start: 20110916
  2. LETAIRIS (AMBRISENTAN) [Concomitant]

REACTIONS (1)
  - Death [None]
